FAERS Safety Report 7605941-X (Version None)
Quarter: 2011Q3

REPORT INFORMATION
  Report Type: 
  Country: None (occurrence: None)
  Receive Date: 20110713
  Receipt Date: 20110629
  Transmission Date: 20111222
  Serious: Yes (Other)
  Sender: FDA-Public Use
  Company Number: PHHY2011BR22975

PATIENT
  Sex: Male

DRUGS (4)
  1. DIOVAN [Suspect]
     Indication: HYPERTENSION
     Dosage: 1 DF, QD
     Route: 048
     Dates: start: 20060101
  2. VERPAMIL HCL [Concomitant]
     Indication: HYPERTROPHIC CARDIOMYOPATHY
     Dosage: 1 DF, QD
     Route: 048
  3. AMIODARONE HCL [Concomitant]
     Indication: ARRHYTHMIA
     Dosage: 1 TABLET MONDAY TO FRIDAY AND IF IT WAS NECESSARY 1 TABLET EVERY DAY
     Route: 048
     Dates: start: 19980101
  4. CAPTOPRIL [Concomitant]
     Indication: HYPERTENSION
     Dosage: 2 TO 6 TABLETS DAILY
     Route: 048
     Dates: start: 20100101

REACTIONS (2)
  - PULMONARY OEDEMA [None]
  - HYPERTENSION [None]
